FAERS Safety Report 4349065-6 (Version None)
Quarter: 2004Q2

REPORT INFORMATION
  Report Type: 
  Country: None (occurrence: None)
  Receive Date: 20040428
  Receipt Date: 20040406
  Transmission Date: 20050107
  Serious: Yes (Hospitalization, Other)
  Sender: FDA-Public Use
  Company Number: JP-BRISTOL-MYERS SQUIBB COMPANY-12553244

PATIENT
  Age: 53 Year
  Sex: Female

DRUGS (1)
  1. TAXOL [Suspect]
     Indication: GASTRIC CANCER
     Dosage: DOSING RANGED FROM 90- 105 MG/WK
     Route: 042
     Dates: start: 20030213, end: 20040219

REACTIONS (3)
  - GASTRIC CANCER [None]
  - METASTASES TO CENTRAL NERVOUS SYSTEM [None]
  - TRIGEMINAL NEURALGIA [None]
